FAERS Safety Report 24652846 (Version 1)
Quarter: 2024Q4

REPORT INFORMATION
  Report Type: Spontaneous
  Country: RO (occurrence: RO)
  Receive Date: 20241122
  Receipt Date: 20241122
  Transmission Date: 20250115
  Serious: Yes (Other)
  Sender: PFIZER
  Company Number: RO-ROCHE-10000128335

PATIENT
  Age: 64 Year

DRUGS (2)
  1. BEVACIZUMAB [Suspect]
     Active Substance: BEVACIZUMAB
     Indication: Hepatocellular carcinoma
     Dosage: 15 MG/KG, EVERY 3 WEEKS; FREQ:21 D;
     Route: 042
     Dates: start: 202211
  2. ATEZOLIZUMAB [Suspect]
     Active Substance: ATEZOLIZUMAB
     Indication: Hepatocellular carcinoma
     Dosage: 1200 MG, EVERY 3 WEEKS; FREQ:21 D;
     Route: 042
     Dates: start: 202211

REACTIONS (5)
  - Portal hypertension [Unknown]
  - Splenomegaly [Unknown]
  - Splenorenal shunt [Unknown]
  - Hepatocellular carcinoma [Unknown]
  - Off label use [Unknown]

NARRATIVE: CASE EVENT DATE: 20230110
